FAERS Safety Report 18877530 (Version 2)
Quarter: 2021Q1

REPORT INFORMATION
  Report Type: Spontaneous
  Country: PL (occurrence: PL)
  Receive Date: 20210211
  Receipt Date: 20210322
  Transmission Date: 20210420
  Serious: Yes (Hospitalization)
  Sender: FDA-Public Use
  Company Number: PL-EMD SERONO-9217284

PATIENT
  Age: 37 Year
  Sex: Female

DRUGS (2)
  1. REBIF [Suspect]
     Active Substance: INTERFERON BETA-1A
     Indication: PRODUCT USED FOR UNKNOWN INDICATION
     Route: 058
  2. REBIF [Suspect]
     Active Substance: INTERFERON BETA-1A
     Dosage: RESTARTED UNKNOWN DOSE

REACTIONS (6)
  - Jaundice [Unknown]
  - Tri-iodothyronine free increased [Unknown]
  - Hepatic steatosis [Recovering/Resolving]
  - Blood thyroid stimulating hormone decreased [Unknown]
  - Thyroxine free increased [Unknown]
  - Drug-induced liver injury [Recovering/Resolving]

NARRATIVE: CASE EVENT DATE: 2020
